FAERS Safety Report 6233952-8 (Version None)
Quarter: 2009Q2

REPORT INFORMATION
  Report Type: 
  Country: None (occurrence: None)
  Receive Date: 20090618
  Receipt Date: 20090609
  Transmission Date: 20091009
  Serious: Yes (Other)
  Sender: FDA-Public Use
  Company Number: MX-ALLERGAN-0908147US

PATIENT

DRUGS (7)
  1. PREDNISOLONE ACETATE [Suspect]
     Indication: POSTOPERATIVE CARE
     Dosage: UNK, QID
     Route: 047
  2. PREDNISOLONE ACETATE [Suspect]
     Dosage: UNK, BID
     Route: 047
  3. CHLORAMPHENICOL [Suspect]
     Indication: POSTOPERATIVE CARE
     Dosage: UNK, QID
     Route: 047
  4. HYPROMELLOSE [Suspect]
     Indication: POSTOPERATIVE CARE
     Dosage: UNK, QID
  5. MITOMYCIN [Suspect]
     Indication: PTERYGIUM
     Dosage: 0.1 ML, SINGLE
     Route: 026
  6. TETRACAINE POLYGYL STERILE OPHTHALMIC SOLUTION [Concomitant]
     Indication: PREOPERATIVE CARE
     Dosage: 2 GTT, SINGLE
     Route: 047
  7. LIDOCAINE HYDROCHLORIDE/EPINEPHRINE [Concomitant]
     Indication: PREOPERATIVE CARE
     Dosage: UNK, SINGLE
     Route: 026

REACTIONS (1)
  - ULCERATIVE KERATITIS [None]
